FAERS Safety Report 12170385 (Version 1)
Quarter: 2016Q1

REPORT INFORMATION
  Report Type: Spontaneous
  Country: GB (occurrence: GB)
  Receive Date: 20160311
  Receipt Date: 20160311
  Transmission Date: 20160526
  Serious: Yes (Other)
  Sender: FDA-Public Use
  Company Number: GB-ACCORD-038599

PATIENT
  Age: 79 Year
  Sex: Male
  Weight: 101 kg

DRUGS (12)
  1. PARACETAMOL [Concomitant]
     Active Substance: ACETAMINOPHEN
     Dates: start: 20150929
  2. VARDENAFIL/VARDENAFIL HYDROCHLORIDE [Concomitant]
     Dosage: AS DIRECTED.
     Dates: start: 20150929
  3. AMITRIPTYLINE [Suspect]
     Active Substance: AMITRIPTYLINE
     Indication: PRODUCT USED FOR UNKNOWN INDICATION
     Dates: start: 20150929
  4. ATORVASTATIN/ATORVASTATIN CALCIUM [Concomitant]
     Dates: start: 20150929
  5. MENTHA X PIPERITA [Concomitant]
     Active Substance: HERBALS
     Dates: start: 20150929
  6. COLGATE DURAPHAT [Concomitant]
     Active Substance: SODIUM FLUORIDE
     Dosage: USE AS DIRECTED.
     Dates: start: 20150929
  7. WARFARIN [Concomitant]
     Active Substance: WARFARIN
     Dosage: AS ADVISED.
     Dates: start: 20150929
  8. HYDROXOCOBALAMIN/HYDROXOCOBALAMIN ACETATE/HYDROXOCOBALAMIN HYDROCHLORIDE [Concomitant]
     Dosage: USE AS DIRECTED.
     Dates: start: 20160112, end: 20160113
  9. OMEPRAZOLE. [Concomitant]
     Active Substance: OMEPRAZOLE
     Dates: start: 20150929
  10. ALVERINE [Concomitant]
     Active Substance: ALVERINE
     Dates: start: 20150929
  11. METFORMIN [Concomitant]
     Active Substance: METFORMIN HYDROCHLORIDE
     Dosage: AFTER FOOD.
     Dates: start: 20150929
  12. SAXAGLIPTIN [Concomitant]
     Active Substance: SAXAGLIPTIN
     Dates: start: 20150929

REACTIONS (1)
  - Tooth erosion [Not Recovered/Not Resolved]

NARRATIVE: CASE EVENT DATE: 20160222
